FAERS Safety Report 25114294 (Version 1)
Quarter: 2025Q1

REPORT INFORMATION
  Report Type: Spontaneous
  Country: US (occurrence: US)
  Receive Date: 20250324
  Receipt Date: 20250324
  Transmission Date: 20250409
  Serious: No
  Sender: ALEMBIC
  Company Number: US-ALEMBIC PHARMACUETICALS LIMITED-2025SCAL000197

PATIENT

DRUGS (1)
  1. BIMATOPROST [Suspect]
     Active Substance: BIMATOPROST
     Indication: Hypotrichosis
     Route: 047
     Dates: start: 202410, end: 20250306

REACTIONS (3)
  - Eyelid pain [Not Recovered/Not Resolved]
  - Inappropriate schedule of product administration [Unknown]
  - Hordeolum [Not Recovered/Not Resolved]

NARRATIVE: CASE EVENT DATE: 20241201
